FAERS Safety Report 24769521 (Version 2)
Quarter: 2025Q1

REPORT INFORMATION
  Report Type: Spontaneous
  Country: US (occurrence: US)
  Receive Date: 20241224
  Receipt Date: 20250121
  Transmission Date: 20250408
  Serious: No
  Sender: ABBVIE
  Company Number: US-ABBVIE-6056984

PATIENT
  Age: 52 Year
  Sex: Female
  Weight: 70 kg

DRUGS (2)
  1. ELAHERE [Suspect]
     Active Substance: MIRVETUXIMAB SORAVTANSINE-GYNX
     Indication: Ovarian cancer
     Dosage: 6
     Route: 042
     Dates: start: 20241104, end: 20241231
  2. ELAHERE [Suspect]
     Active Substance: MIRVETUXIMAB SORAVTANSINE-GYNX
     Indication: Ovarian cancer
     Dosage: 5
     Route: 042
     Dates: start: 20241231

REACTIONS (2)
  - Vision blurred [Recovered/Resolved]
  - Corneal deposits [Recovered/Resolved]

NARRATIVE: CASE EVENT DATE: 20241110
